FAERS Safety Report 21129945 (Version 1)
Quarter: 2022Q3

REPORT INFORMATION
  Report Type: Spontaneous
  Country: SG (occurrence: SG)
  Receive Date: 20220726
  Receipt Date: 20220726
  Transmission Date: 20221027
  Serious: Yes (Other)
  Sender: FDA-Public Use
  Company Number: SG-BoehringerIngelheim-2022-BI-183445

PATIENT
  Sex: Female

DRUGS (1)
  1. EMPAGLIFLOZIN [Suspect]
     Active Substance: EMPAGLIFLOZIN
     Indication: Product used for unknown indication

REACTIONS (5)
  - Sepsis [Unknown]
  - Sepsis [Unknown]
  - Urinary tract infection [Unknown]
  - Urinary tract infection [Unknown]
  - Glycosylated haemoglobin increased [Unknown]
